FAERS Safety Report 5010365-8 (Version None)
Quarter: 2006Q2

REPORT INFORMATION
  Report Type: 
  Country: None (occurrence: None)
  Receive Date: 20060522
  Receipt Date: 20060508
  Transmission Date: 20061013
  Serious: Yes (Other)
  Sender: FDA-Public Use
  Company Number: HQWYE779021JAN05

PATIENT
  Age: 65 Year
  Sex: Female
  Weight: 68.1 kg

DRUGS (5)
  1. PREMPRO [Suspect]
     Dosage: 0.625MG/2.5MG, ORAL
     Route: 048
     Dates: start: 20010101, end: 20030101
  2. PREMARIN [Suspect]
     Dosage: 0.625MG, ORAL
     Route: 048
     Dates: start: 19950101, end: 19980101
  3. PROVERA [Suspect]
     Dosage: 2.5MG, ORAL
     Route: 048
     Dates: start: 19950101, end: 19980101
  4. ESTROGENIC SUBSTANCE CAP [Suspect]
     Dosage: ORAL
     Route: 048
     Dates: start: 19980101, end: 20000101
  5. SYNTHROID [Concomitant]

REACTIONS (2)
  - BREAST CANCER FEMALE [None]
  - BREAST CANCER IN SITU [None]
